FAERS Safety Report 8491598-5 (Version None)
Quarter: 2012Q2

REPORT INFORMATION
  Report Type: 
  Country: None (occurrence: None)
  Receive Date: 20120402
  Receipt Date: 20100420
  Transmission Date: 20120825
  Serious: Yes (Other)
  Sender: FDA-Public Use
  Company Number: PHHY2010US23320

PATIENT
  Age: 76 Year
  Sex: Female

DRUGS (7)
  1. ASPIRIN [Concomitant]
  2. SYNTHROID [Concomitant]
  3. PRIMIDONE [Concomitant]
  4. IRON (IRON) [Concomitant]
  5. EXFORGE HCT [Suspect]
     Dosage: ORAL
     Route: 048
  6. MULTIVITAMINS (ASCORBIC ACID, ERGOCALCIFEROL, FOLIC ACID, NICOTINAMIDE [Concomitant]
  7. VITAMIN D [Concomitant]

REACTIONS (6)
  - READING DISORDER [None]
  - DIARRHOEA [None]
  - MALAISE [None]
  - SOMNOLENCE [None]
  - DYSPLASIA [None]
  - HYPOTENSION [None]
